FAERS Safety Report 7334754-1 (Version None)
Quarter: 2011Q1

REPORT INFORMATION
  Report Type: 
  Country: None (occurrence: None)
  Receive Date: 20110307
  Receipt Date: 20110301
  Transmission Date: 20110831
  Serious: Yes (Other)
  Sender: FDA-Public Use
  Company Number: NL-ROXANE LABORATORIES, INC.-2011-RO-00237RO

PATIENT
  Age: 76 Year
  Sex: Male

DRUGS (2)
  1. ALENDRONIC ACID [Suspect]
  2. FLECAINIDE ACETATE [Suspect]

REACTIONS (1)
  - DRUG ERUPTION [None]
